FAERS Safety Report 24003030 (Version 1)
Quarter: 2024Q2

REPORT INFORMATION
  Report Type: Spontaneous
  Country: US (occurrence: US)
  Receive Date: 20240624
  Receipt Date: 20240624
  Transmission Date: 20240716
  Serious: No
  Sender: FDA-Public Use
  Company Number: US-SA-SAC20240617000256

PATIENT
  Sex: Female

DRUGS (2)
  1. DUPIXENT [Suspect]
     Active Substance: DUPILUMAB
     Indication: Asthma
     Dosage: INJECT 2 PENS, 600 MG UNDER THE SKIN ON DAY 1,
     Route: 058
  2. DUPIXENT [Suspect]
     Active Substance: DUPILUMAB
     Indication: Nasal polyps
     Dosage: 300 MG ON DAY 15, THEN 1 PEN, 300 MG EVERY 14 DAYS THEREAFTER
     Route: 058

REACTIONS (1)
  - Peripheral swelling [Unknown]
